FAERS Safety Report 9491411 (Version 2)
Quarter: 2013Q1

REPORT INFORMATION
  Report Type: Not Available
  Country: US (occurrence: US)
  Receive Date: 20120619
  Receipt Date: 20120619
  Transmission Date: 20140127
  Serious: Yes (Hospitalization, Other)
  Sender: FDA-Public Use
  Company Number: US-LUNDBECK-DKLU1062572

PATIENT
  Age: 8 None
  Sex: Male
  Weight: 24.6 kg

DRUGS (10)
  1. CLOBAZAM [Suspect]
     Indication: LENNOX-GASTAUT SYNDROME
     Route: 048
     Dates: start: 20081210
  2. CLOBAZAM [Suspect]
     Route: 048
     Dates: start: 20090926
  3. LAMICTAL [Concomitant]
     Indication: EPILEPSY
     Route: 048
     Dates: start: 20100422
  4. KEPPRA [Concomitant]
     Indication: EPILEPSY
     Route: 048
     Dates: start: 20100521, end: 20100522
  5. KEPPRA [Concomitant]
     Route: 048
     Dates: start: 20100523, end: 20100523
  6. KEPPRA [Concomitant]
     Route: 048
     Dates: start: 20100524, end: 20100524
  7. KEPPRA [Concomitant]
     Route: 048
     Dates: start: 20100525
  8. VITAMIN B6 [Concomitant]
     Indication: PRODUCT USED FOR UNKNOWN INDICATION
     Route: 048
  9. COCONUT OIL [Concomitant]
     Indication: PRODUCT USED FOR UNKNOWN INDICATION
     Route: 048
  10. OMEGA-3 FATTY ACIDS [Concomitant]
     Indication: PRODUCT USED FOR UNKNOWN INDICATION

REACTIONS (3)
  - Convulsion [Recovered/Resolved]
  - Encephalopathy [Recovered/Resolved]
  - Constipation [Recovered/Resolved]
